FAERS Safety Report 6008040-6 (Version None)
Quarter: 2008Q4

REPORT INFORMATION
  Report Type: 
  Country: None (occurrence: None)
  Receive Date: 20081217
  Receipt Date: 20080805
  Transmission Date: 20090506
  Serious: No
  Sender: FDA-Public Use
  Company Number: US-ASTRAZENECA-2008UW16014

PATIENT
  Age: 60 Year
  Sex: Female
  Weight: 54.4 kg

DRUGS (2)
  1. CRESTOR [Suspect]
     Indication: LOW DENSITY LIPOPROTEIN INCREASED
     Dosage: 1/2 TO 5 MG EVERY OTHER DAY
     Route: 048
     Dates: start: 20080501
  2. SYNTHROID [Concomitant]

REACTIONS (1)
  - MUSCLE SPASMS [None]
